FAERS Safety Report 4577562-7 (Version None)
Quarter: 2005Q1

REPORT INFORMATION
  Report Type: 
  Country: None (occurrence: None)
  Receive Date: 20050208
  Receipt Date: 20050128
  Transmission Date: 20050727
  Serious: No
  Sender: FDA-Public Use
  Company Number: 2004CG01895

PATIENT
  Age: 76 Year
  Sex: Female
  Weight: 65 kg

DRUGS (6)
  1. CARBOCAINE [Suspect]
     Indication: ANAESTHESIA
     Dosage: 800 MG ONCE RNB
     Dates: start: 20021105, end: 20021105
  2. LEVOTHYROX [Concomitant]
  3. TANAKAN [Concomitant]
  4. HYZAAR [Concomitant]
  5. VASTEN [Concomitant]
  6. ZOLPIDEM TARTRATE [Concomitant]

REACTIONS (6)
  - AMNESIA [None]
  - ANAESTHETIC COMPLICATION [None]
  - CONVULSION [None]
  - EYE DISORDER [None]
  - OVERDOSE [None]
  - SINUS BRADYCARDIA [None]
